FAERS Safety Report 6427853-X (Version None)
Quarter: 2009Q4

REPORT INFORMATION
  Report Type: 
  Country: None (occurrence: None)
  Receive Date: 20091105
  Receipt Date: 20091028
  Transmission Date: 20100525
  Serious: Yes (Other)
  Sender: FDA-Public Use
  Company Number: GB-ASTRAZENECA-2009SE23091

PATIENT
  Age: 36 Year
  Sex: Female
  Weight: 56 kg

DRUGS (2)
  1. EMLA [Suspect]
     Indication: PHOBIA
     Route: 061
     Dates: start: 20090918
  2. MALARONE [Suspect]
     Indication: MALARIA PROPHYLAXIS
     Dosage: ONE TABLET DAILY
     Route: 048
     Dates: start: 20090801, end: 20090820

REACTIONS (4)
  - ABORTION MISSED [None]
  - ABORTION SPONTANEOUS [None]
  - BLIGHTED OVUM [None]
  - DRUG EXPOSURE DURING PREGNANCY [None]
